FAERS Safety Report 6104499-4 (Version None)
Quarter: 2009Q1

REPORT INFORMATION
  Report Type: 
  Country: None (occurrence: None)
  Receive Date: 20090227
  Receipt Date: 20080527
  Transmission Date: 20090719
  Serious: Yes (Death)
  Sender: FDA-Public Use
  Company Number: RB-1542-2008

PATIENT
  Age: 27 Year
  Sex: Male
  Weight: 88.905 kg

DRUGS (3)
  1. SUBOXONE [Suspect]
     Indication: DRUG DEPENDENCE
     Dosage: 2 MG BID SUBLINGUAL;  8 MG BID SUBLINGUAL; 8 MG TID SUBLINGUAL
     Route: 060
     Dates: start: 20060313, end: 20060315
  2. SUBOXONE [Suspect]
     Indication: DRUG DEPENDENCE
     Dosage: 2 MG BID SUBLINGUAL;  8 MG BID SUBLINGUAL; 8 MG TID SUBLINGUAL
     Route: 060
     Dates: start: 20060316, end: 20060320
  3. SUBOXONE [Suspect]
     Indication: DRUG DEPENDENCE
     Dosage: 2 MG BID SUBLINGUAL;  8 MG BID SUBLINGUAL; 8 MG TID SUBLINGUAL
     Route: 060
     Dates: start: 20060321, end: 20080510

REACTIONS (2)
  - ROAD TRAFFIC ACCIDENT [None]
  - SOMNAMBULISM [None]
